FAERS Safety Report 8168572-1 (Version None)
Quarter: 2012Q1

REPORT INFORMATION
  Report Type: 
  Country: None (occurrence: None)
  Receive Date: 20120227
  Receipt Date: 20120221
  Transmission Date: 20120608
  Serious: Yes (Hospitalization, Congenital Anomaly, Other)
  Sender: FDA-Public Use
  Company Number: US-PFIZER INC-2011302117

PATIENT
  Sex: Male

DRUGS (2)
  1. ZOLOFT [Suspect]
     Indication: POSTPARTUM DEPRESSION
     Dosage: 50 MG, 1X/DAY
     Route: 064
     Dates: start: 20070101
  2. MULTI-VITAMINS [Concomitant]
     Route: 064

REACTIONS (13)
  - INTERSTITIAL LUNG DISEASE [None]
  - ADRENAL INSUFFICIENCY [None]
  - SPEECH DISORDER [None]
  - NEONATAL TACHYPNOEA [None]
  - BRONCHIOLITIS [None]
  - CONGENITAL AORTIC STENOSIS [None]
  - NEONATAL RESPIRATORY DISTRESS SYNDROME [None]
  - AUTISM [None]
  - LEFT VENTRICULAR DYSFUNCTION [None]
  - MATERNAL EXPOSURE TIMING UNSPECIFIED [None]
  - COARCTATION OF THE AORTA [None]
  - NEONATAL HYPOTENSION [None]
  - PHARYNGITIS STREPTOCOCCAL [None]
